FAERS Safety Report 15515383 (Version 1)
Quarter: 2018Q4

REPORT INFORMATION
  Report Type: Report from Study
  Country: IT (occurrence: IT)
  Receive Date: 20181017
  Receipt Date: 20181017
  Transmission Date: 20190205
  Serious: Yes (Other)
  Sender: FDA-Public Use
  Company Number: IT-ACCORD-073366

PATIENT
  Age: 71 Year
  Sex: Female

DRUGS (2)
  1. CAPECITABINA ACCORD [Concomitant]
     Active Substance: CAPECITABINE
     Indication: COLON CANCER
     Dosage: ALSO RECEIVED AT THE DOSE OF 3000 MG
     Dates: start: 20170726, end: 20171115
  2. OXALIPLATIN ACCORD HEALTHCARE [Suspect]
     Active Substance: OXALIPLATIN
     Indication: COLON CANCER
     Dosage: ALSO RECEIVED AT THE DOSE OF 3000 MG
     Dates: start: 20170726, end: 20171115

REACTIONS (2)
  - Infusion related reaction [Recovered/Resolved]
  - Hypersensitivity [Recovered/Resolved]

NARRATIVE: CASE EVENT DATE: 20171115
